FAERS Safety Report 4636339-4 (Version None)
Quarter: 2005Q2

REPORT INFORMATION
  Report Type: 
  Country: None (occurrence: None)
  Receive Date: 20050415
  Receipt Date: 20041117
  Transmission Date: 20051028
  Serious: No
  Sender: FDA-Public Use
  Company Number: US-BRISTOL-MYERS SQUIBB COMPANY-12769238

PATIENT
  Age: 76 Year
  Sex: Female
  Weight: 176 kg

DRUGS (3)
  1. PARAPLATIN [Suspect]
     Indication: OVARIAN CANCER
     Route: 042
     Dates: start: 20040801
  2. DOCETAXEL [Concomitant]
  3. RANITIDINE [Concomitant]

REACTIONS (1)
  - RASH [None]
